FAERS Safety Report 7069532-4 (Version None)
Quarter: 2010Q4

REPORT INFORMATION
  Report Type: 
  Country: None (occurrence: None)
  Receive Date: 20101028
  Receipt Date: 20100208
  Transmission Date: 20110411
  Serious: No
  Sender: FDA-Public Use
  Company Number: US-WYE-H13544110

PATIENT
  Age: 82 Year
  Sex: Male
  Weight: 77.18 kg

DRUGS (8)
  1. PROTONIX [Suspect]
     Indication: GASTROOESOPHAGEAL REFLUX DISEASE
     Route: 048
  2. METOPROLOL [Suspect]
     Indication: HYPERTENSION
     Route: 048
  3. ASPIRIN [Suspect]
     Indication: CARDIAC DISORDER
     Route: 048
  4. CRESTOR [Suspect]
     Indication: BLOOD CHOLESTEROL INCREASED
     Route: 048
  5. PLAVIX [Suspect]
     Indication: CARDIAC DISORDER
     Route: 048
  6. METAMUCIL-2 [Suspect]
     Indication: CONSTIPATION
     Route: 048
  7. LISINOPRIL [Suspect]
     Indication: HYPERTENSION
     Route: 048
  8. SULFADIAZINE [Suspect]
     Indication: THERMAL BURN
     Dosage: 1%
     Route: 061
     Dates: start: 20091021, end: 20091201

REACTIONS (3)
  - CONDITION AGGRAVATED [None]
  - IMPAIRED HEALING [None]
  - THERMAL BURN [None]
